FAERS Safety Report 8992835 (Version 1)
Quarter: 2013Q1

REPORT INFORMATION
  Report Type: Spontaneous
  Country: JP (occurrence: JP)
  Receive Date: 20130102
  Receipt Date: 20130102
  Transmission Date: 20140127
  Serious: Yes (Other)
  Sender: FDA-Public Use
  Company Number: JP-TEVA-377253ISR

PATIENT
  Sex: Female

DRUGS (1)
  1. LANSOPRAZOLE [Suspect]

REACTIONS (1)
  - Carcinogenicity [Unknown]
